FAERS Safety Report 15320313 (Version 2)
Quarter: 2019Q2

REPORT INFORMATION
  Report Type: Report from Study
  Country: None (occurrence: BR)
  Receive Date: 20180827
  Receipt Date: 20190527
  Transmission Date: 20190711
  Serious: Yes (Other)
  Sender: FDA-Public Use
  Company Number: BR-ABBVIE-18K-020-2460028-00

PATIENT
  Age: 58 Year
  Sex: Female
  Weight: 72 kg

DRUGS (3)
  1. HUMIRA [Suspect]
     Active Substance: ADALIMUMAB
     Indication: PSORIATIC ARTHROPATHY
     Dosage: WEEK 0
     Route: 058
  2. HUMIRA [Suspect]
     Active Substance: ADALIMUMAB
     Dosage: WEEK 2
     Route: 058
     Dates: end: 20190301
  3. TARFIC [Concomitant]
     Indication: PSORIASIS

REACTIONS (29)
  - Joint range of motion decreased [Unknown]
  - Psoriasis [Unknown]
  - Drug ineffective [Unknown]
  - Weight decreased [Unknown]
  - Skin haemorrhage [Unknown]
  - Limb injury [Unknown]
  - Dry skin [Unknown]
  - Scab [Unknown]
  - Vulvovaginal burning sensation [Unknown]
  - Anal pruritus [Unknown]
  - Skin atrophy [Unknown]
  - Pruritus [Unknown]
  - Skin wound [Unknown]
  - Vulvovaginal pruritus [Unknown]
  - Nail discolouration [Unknown]
  - Loss of personal independence in daily activities [Unknown]
  - Blister [Unknown]
  - Nail disorder [Unknown]
  - Erythema [Unknown]
  - Pain [Unknown]
  - Mobility decreased [Unknown]
  - Wound haemorrhage [Unknown]
  - Skin haemorrhage [Recovered/Resolved]
  - Nail atrophy [Unknown]
  - Nail cuticle fissure [Unknown]
  - Skin exfoliation [Unknown]
  - Psoriatic arthropathy [Not Recovered/Not Resolved]
  - Bedridden [Unknown]
  - Burning sensation [Unknown]

NARRATIVE: CASE EVENT DATE: 20180813
